FAERS Safety Report 5235998-5 (Version None)
Quarter: 2007Q1

REPORT INFORMATION
  Report Type: 
  Country: None (occurrence: None)
  Receive Date: 20061208
  Receipt Date: 20051213
  Transmission Date: 20070707
  Serious: Yes (Other)
  Sender: FDA-Public Use
  Company Number: 2005UW18776

PATIENT
  Age: 63 Year
  Sex: Female
  Weight: 58.967 kg

DRUGS (2)
  1. CRESTOR [Suspect]
     Indication: HYPERCHOLESTEROLAEMIA
     Dosage: 10 MG QD PO
     Route: 048
  2. LEVOXYL [Concomitant]

REACTIONS (2)
  - EYE HAEMORRHAGE [None]
  - LOCAL SWELLING [None]
